FAERS Safety Report 7941116-2 (Version None)
Quarter: 2011Q4

REPORT INFORMATION
  Report Type: 
  Country: None (occurrence: None)
  Receive Date: 20111122
  Receipt Date: 20111110
  Transmission Date: 20120403
  Serious: Yes (Other)
  Sender: FDA-Public Use
  Company Number: 2011P1010227

PATIENT
  Age: 40 Year
  Sex: Female

DRUGS (1)
  1. CETIRIZINE HCL [Suspect]
     Indication: ALLERGIC SINUSITIS
     Dosage: 10 MG, QD
     Dates: start: 20100501, end: 20100501

REACTIONS (7)
  - DYSPHAGIA [None]
  - VIITH NERVE PARALYSIS [None]
  - FACIAL PARESIS [None]
  - DIPLOPIA [None]
  - DYSPHONIA [None]
  - JAW DISORDER [None]
  - MUSCULAR WEAKNESS [None]
